FAERS Safety Report 18696971 (Version 3)
Quarter: 2021Q2

REPORT INFORMATION
  Report Type: Spontaneous
  Country: US (occurrence: US)
  Receive Date: 20210104
  Receipt Date: 20210622
  Transmission Date: 20210717
  Serious: Yes (Hospitalization, Other)
  Sender: FDA-Public Use
  Company Number: US-GILEAD-2020-0510869

PATIENT
  Age: 60 Year
  Sex: Male
  Weight: 74.83 kg

DRUGS (15)
  1. TRUVADA [Suspect]
     Active Substance: EMTRICITABINE\TENOFOVIR DISOPROXIL FUMARATE
     Indication: HIV INFECTION
     Dosage: UNK
     Route: 048
     Dates: start: 2004, end: 2010
  2. LASIX [Concomitant]
     Active Substance: FUROSEMIDE
     Dosage: UNK
     Dates: start: 201905
  3. CRESTOR [Concomitant]
     Active Substance: ROSUVASTATIN CALCIUM
     Dosage: UNK
     Dates: start: 201309, end: 201908
  4. FLOMAX [Concomitant]
     Active Substance: TAMSULOSIN HYDROCHLORIDE
     Dosage: UNK
     Dates: start: 201308
  5. SUSTIVA [Concomitant]
     Active Substance: EFAVIRENZ
     Dosage: UNK
     Dates: start: 201904
  6. TYLENOL [Concomitant]
     Active Substance: ACETAMINOPHEN
     Dosage: UNK
     Dates: start: 201901, end: 202012
  7. ISENTRESS [Concomitant]
     Active Substance: RALTEGRAVIR POTASSIUM
     Dosage: UNK
     Dates: start: 201908
  8. INSULIN [Concomitant]
     Active Substance: INSULIN NOS
     Dosage: UNK
     Dates: start: 201308
  9. ASPIRIN [ACETYLSALICYLIC ACID] [Concomitant]
     Active Substance: ASPIRIN
     Dosage: UNK
     Dates: start: 201309
  10. OMEPRAZOLE. [Concomitant]
     Active Substance: OMEPRAZOLE
  11. COMBIVIR [Concomitant]
     Active Substance: LAMIVUDINE\ZIDOVUDINE
     Dosage: UNK
     Dates: start: 201304, end: 201806
  12. NIACIN. [Concomitant]
     Active Substance: NIACIN
     Dosage: UNK
     Dates: start: 201908
  13. BIKTARVY [Concomitant]
     Active Substance: BICTEGRAVIR SODIUM\EMTRICITABINE\TENOFOVIR ALAFENAMIDE FUMARATE
  14. INSULIN [Concomitant]
     Active Substance: INSULIN NOS
     Indication: DIABETES MELLITUS
     Dosage: UNK
     Dates: start: 2010, end: 2017
  15. XANAX [Concomitant]
     Active Substance: ALPRAZOLAM
     Dosage: UNK
     Dates: start: 201308, end: 201309

REACTIONS (13)
  - Walking disability [Unknown]
  - Chronic obstructive pulmonary disease [Unknown]
  - Depression [Unknown]
  - End stage renal disease [Not Recovered/Not Resolved]
  - Anxiety [Unknown]
  - Pain [Unknown]
  - Fatigue [Unknown]
  - Acute kidney injury [Unknown]
  - Anhedonia [Unknown]
  - Impaired work ability [Unknown]
  - Dyspnoea [Unknown]
  - Chronic kidney disease [Not Recovered/Not Resolved]
  - Emotional distress [Unknown]

NARRATIVE: CASE EVENT DATE: 20130823
